FAERS Safety Report 6176383-1 (Version None)
Quarter: 2009Q2

REPORT INFORMATION
  Report Type: 
  Country: None (occurrence: None)
  Receive Date: 20090501
  Receipt Date: 20090424
  Transmission Date: 20091009
  Serious: Yes (Death, Hospitalization)
  Sender: FDA-Public Use
  Company Number: US-BAYER-200813158NA

PATIENT
  Age: 39 Year
  Sex: Male
  Weight: 80 kg

DRUGS (33)
  1. CAMPATH [Suspect]
     Indication: ACUTE LYMPHOCYTIC LEUKAEMIA
     Dosage: 5 MG SC DAYS 1, 4, AND 7
     Route: 058
     Dates: start: 20071221, end: 20071231
  2. METHOTREXATE [Suspect]
     Indication: ACUTE LYMPHOCYTIC LEUKAEMIA
     Dosage: 100 MG/M2 IV DAY 1
     Route: 042
     Dates: start: 20071221
  3. METHOTREXATE [Suspect]
     Dosage: ESCALATED BY 50% EACH CYCLE TO MAXIMUM 225 MG/M2
     Route: 042
     Dates: end: 20080101
  4. VINCRISTINE [Suspect]
     Indication: ACUTE LYMPHOCYTIC LEUKAEMIA
     Dosage: 2 MG IV BOLUS INJECTION DAY 2
     Route: 040
     Dates: start: 20071222
  5. L-ASPARAGINASE [Suspect]
     Indication: ACUTE LYMPHOCYTIC LEUKAEMIA
     Dosage: 500 IU/KG IM DAY 2
     Route: 030
     Dates: start: 20071222
  6. DEXAMETHASONE TAB [Suspect]
     Indication: ACUTE LYMPHOCYTIC LEUKAEMIA
     Dosage: TOTAL DAILY DOSE: 12 MG
     Route: 048
     Dates: start: 20071221
  7. BACTRIM DS [Concomitant]
     Indication: INFECTION PROPHYLAXIS
     Dosage: DAILY 3X WEEKLY, SHOULD CONTINUE UNTIL CD4 COUNTS ARE } 200 OR 2 MONTHS AFTER CAMPATH COMPLETED, W
     Route: 048
  8. FAMCICLOVIR [Concomitant]
     Indication: INFECTION PROPHYLAXIS
     Dosage: 250 MG 2X /DAY, SHOULD CONTINUE UNTIL CD4 COUNTS ARE } 200 OR 2 MONTHS AFTER CAMPATH COMPLETED, W
     Route: 048
  9. ALLOPURINOL [Concomitant]
     Indication: TUMOUR LYSIS SYNDROME
     Dosage: TOTAL DAILY DOSE: 300 MG
     Route: 048
     Dates: start: 20071201, end: 20080101
  10. SENNA S [Concomitant]
     Dosage: 1 TABLET BID
     Route: 048
  11. METHADONE [Concomitant]
     Dosage: TOTAL DAILY DOSE: 45 MG
     Route: 048
  12. METHADONE [Concomitant]
     Dosage: 5 MG Q6H PRN PAIN
     Route: 048
  13. ONDANSETRON [Concomitant]
     Route: 048
     Dates: start: 20071231, end: 20071231
  14. BENADRYL [Concomitant]
     Route: 048
     Dates: start: 20071231, end: 20071231
  15. TYLENOL [Concomitant]
     Route: 048
     Dates: start: 20071231, end: 20071231
  16. DIFLUCAN [Concomitant]
     Route: 048
     Dates: start: 20071231
  17. VALTREX [Concomitant]
     Route: 048
  18. K-DUR [Concomitant]
     Route: 048
  19. LANTUS [Concomitant]
     Dosage: TOTAL DAILY DOSE: 30 U
     Route: 058
  20. LANTUS [Concomitant]
     Dosage: TOTAL DAILY DOSE: 35 U
     Route: 058
  21. NOVOLOG [Concomitant]
     Dosage: TOTAL DAILY DOSE: 30 U
     Route: 058
  22. COMPAZINE [Concomitant]
     Dosage: 10 MG Q6H PRN
     Route: 048
  23. PRILOSEC [Concomitant]
     Dosage: TOTAL DAILY DOSE: 20 MG
     Route: 048
  24. NOVOLIN R [Concomitant]
     Dosage: 5 UNITS/HOUR IN 100 ML NSS
     Route: 041
  25. NOVOLIN R [Concomitant]
     Route: 058
  26. METOPROLOL TARTRATE [Concomitant]
     Dosage: TOTAL DAILY DOSE: 12.5 MG
     Route: 048
  27. FENTANYL [Concomitant]
     Route: 062
  28. FLUOXETINE HCL [Concomitant]
     Dosage: TOTAL DAILY DOSE: 20 MG
     Route: 048
  29. MIRTAZAPINE [Concomitant]
     Dosage: TOTAL DAILY DOSE: 15 MG
     Route: 048
  30. THIAMINE HCL [Concomitant]
     Dosage: TOTAL DAILY DOSE: 100 MG
     Route: 048
  31. FOLIC ACID [Concomitant]
     Dosage: TOTAL DAILY DOSE: 1 MG
     Route: 048
  32. AMBIEN [Concomitant]
     Dosage: TOTAL DAILY DOSE: 10 MG
     Route: 048
  33. NAPROSYN [Concomitant]
     Route: 048

REACTIONS (19)
  - ACUTE LYMPHOCYTIC LEUKAEMIA [None]
  - ARRHYTHMIA SUPRAVENTRICULAR [None]
  - ATRIAL TACHYCARDIA [None]
  - CARDIAC VALVE DISEASE [None]
  - COGNITIVE DISORDER [None]
  - COUGH [None]
  - DEHYDRATION [None]
  - DYSPNOEA [None]
  - ENDOCARDITIS [None]
  - GASTROINTESTINAL HAEMORRHAGE [None]
  - HAEMATOMA [None]
  - HYPERGLYCAEMIA [None]
  - HYPERHIDROSIS [None]
  - HYPOALBUMINAEMIA [None]
  - HYPOCALCAEMIA [None]
  - HYPOTENSION [None]
  - HYPOXIA [None]
  - LYMPHOPENIA [None]
  - OEDEMA PERIPHERAL [None]
